FAERS Safety Report 14327955 (Version 1)
Quarter: 2017Q4

REPORT INFORMATION
  Report Type: Report from Study
  Country: DE (occurrence: DE)
  Receive Date: 20171227
  Receipt Date: 20171227
  Transmission Date: 20180321
  Serious: Yes (Other)
  Sender: FDA-Public Use
  Company Number: DE-BAYER-2017-243835

PATIENT
  Age: 19 Year
  Sex: Female

DRUGS (2)
  1. VITAMIN D [Concomitant]
     Active Substance: CHOLECALCIFEROL
     Dosage: UNK
  2. BETAFERON [Suspect]
     Active Substance: INTERFERON BETA-1B
     Indication: MULTIPLE SCLEROSIS
     Dosage: 250 ?G, QOD
     Route: 058
     Dates: start: 20140123

REACTIONS (5)
  - Cystitis [Recovering/Resolving]
  - Influenza like illness [Recovered/Resolved]
  - Tonsillitis [Recovering/Resolving]
  - Infection susceptibility increased [Recovering/Resolving]
  - Nasopharyngitis [Recovering/Resolving]
